FAERS Safety Report 4615639-8 (Version None)
Quarter: 2005Q1

REPORT INFORMATION
  Report Type: 
  Country: None (occurrence: None)
  Receive Date: 20050317
  Receipt Date: 20050304
  Transmission Date: 20050727
  Serious: No
  Sender: FDA-Public Use
  Company Number: P200500004

PATIENT
  Age: 81 Year
  Sex: Male

DRUGS (1)
  1. PLENAXIS [Suspect]
     Indication: PROSTATE CANCER
     Dosage: 100 MG, SINGLE, INTRAMUSCULAR
     Route: 030
     Dates: start: 20040609, end: 20040609

REACTIONS (1)
  - NO ADVERSE EFFECT [None]
